FAERS Safety Report 7942953-0 (Version None)
Quarter: 2011Q4

REPORT INFORMATION
  Report Type: 
  Country: None (occurrence: None)
  Receive Date: 20111128
  Receipt Date: 20111117
  Transmission Date: 20120403
  Serious: Yes (Other)
  Sender: FDA-Public Use
  Company Number: CA-MERCK-1111USA02286

PATIENT
  Sex: Female

DRUGS (6)
  1. CENTRUM [Concomitant]
     Route: 065
  2. ASPIRIN [Concomitant]
     Route: 065
  3. RAMIPRIL [Concomitant]
     Route: 065
  4. FOSAMAX [Suspect]
     Route: 065
  5. CRESTOR [Concomitant]
     Route: 065
  6. ASCORBIC ACID [Concomitant]
     Route: 065

REACTIONS (1)
  - DRY EYE [None]
